FAERS Safety Report 18484903 (Version 1)
Quarter: 2020Q4

REPORT INFORMATION
  Report Type: Spontaneous
  Country: US (occurrence: US)
  Receive Date: 20201109
  Receipt Date: 20201109
  Transmission Date: 20210114
  Serious: No
  Sender: FDA-Public Use
  Company Number: None

PATIENT
  Age: 77 Year
  Sex: Female

DRUGS (1)
  1. PROLIA [Suspect]
     Active Substance: DENOSUMAB
     Indication: SENILE OSTEOPOROSIS
     Dosage: 60 MG/ML EVERY 6 MONTHS SUBCUTANEOUS
     Route: 058
     Dates: start: 20191030

REACTIONS (2)
  - Neoplasm malignant [None]
  - Therapy cessation [None]

NARRATIVE: CASE EVENT DATE: 20201030
